FAERS Safety Report 17690207 (Version 1)
Quarter: 2020Q2

REPORT INFORMATION
  Report Type: Spontaneous
  Country: NL (occurrence: GB)
  Receive Date: 20200421
  Receipt Date: 20200421
  Transmission Date: 20200714
  Serious: Yes (Other)
  Sender: FDA-Public Use
  Company Number: GB-FRESENIUS KABI-FK202003864

PATIENT
  Sex: Male

DRUGS (1)
  1. LACTULOSE (MANUFACTURER UNKNOWN) [Suspect]
     Active Substance: LACTULOSE
     Indication: PRODUCT USED FOR UNKNOWN INDICATION
     Route: 065

REACTIONS (1)
  - Dementia [Unknown]
